FAERS Safety Report 19431351 (Version 1)
Quarter: 2021Q2

REPORT INFORMATION
  Report Type: Spontaneous
  Country: JP (occurrence: JP)
  Receive Date: 20210618
  Receipt Date: 20210618
  Transmission Date: 20210717
  Serious: Yes (Other)
  Sender: FDA-Public Use
  Company Number: JP-MACLEODS PHARMACEUTICALS US LTD-MAC2021031536

PATIENT

DRUGS (2)
  1. PEROSPIRONE [Concomitant]
     Active Substance: PEROSPIRONE
     Indication: DEMENTIA WITH LEWY BODIES
     Dosage: 4 MILLIGRAM
     Route: 065
  2. DONEPEZIL. [Suspect]
     Active Substance: DONEPEZIL
     Indication: DEMENTIA WITH LEWY BODIES
     Dosage: 5 MILLIGRAM, QD
     Route: 065

REACTIONS (1)
  - Sinus node dysfunction [Recovered/Resolved]
